FAERS Safety Report 23872969 (Version 1)
Quarter: 2024Q2

REPORT INFORMATION
  Report Type: Spontaneous
  Country: US (occurrence: US)
  Receive Date: 20240520
  Receipt Date: 20240520
  Transmission Date: 20240716
  Serious: No
  Sender: FDA-Public Use
  Company Number: HIKM2400414

PATIENT
  Sex: Female

DRUGS (1)
  1. ESTRADIOL VALERATE [Suspect]
     Active Substance: ESTRADIOL VALERATE
     Indication: In vitro fertilisation
     Dosage: 1 CC TO 1.5 CC
     Route: 065

REACTIONS (2)
  - Product use issue [Unknown]
  - Product colour issue [Unknown]
